FAERS Safety Report 25127689 (Version 3)
Quarter: 2025Q2

REPORT INFORMATION
  Report Type: Spontaneous
  Country: US (occurrence: US)
  Receive Date: 20250327
  Receipt Date: 20250522
  Transmission Date: 20250717
  Serious: Yes (Other)
  Sender: SANOFI AVENTIS
  Company Number: US-SA-2025SA085101

PATIENT
  Age: 28 Year
  Sex: Female

DRUGS (18)
  1. DUPIXENT [Suspect]
     Active Substance: DUPILUMAB
     Indication: Asthma
     Route: 058
     Dates: start: 20200902, end: 2025
  2. DUPIXENT [Suspect]
     Active Substance: DUPILUMAB
     Dates: start: 202503
  3. SUMATRIPTAN [Concomitant]
     Active Substance: SUMATRIPTAN
  4. VITAMINS NOS [Concomitant]
     Active Substance: VITAMINS
  5. TYLENOL [Concomitant]
     Active Substance: ACETAMINOPHEN
  6. IBUPROFEN [Concomitant]
     Active Substance: IBUPROFEN
     Route: 048
  7. SINGULAIR [Concomitant]
     Active Substance: MONTELUKAST SODIUM
     Route: 048
  8. LEVOTHYROXINE [Concomitant]
     Active Substance: LEVOTHYROXINE
  9. IPRATROPIUM [Concomitant]
     Active Substance: IPRATROPIUM
  10. VITAMINS [Concomitant]
     Active Substance: VITAMINS
     Route: 048
  11. CLARITIN [Concomitant]
     Active Substance: LORATADINE
     Route: 048
  12. ALBUTEROL SULFATE [Concomitant]
     Active Substance: ALBUTEROL SULFATE
     Route: 048
  13. SUDAFED [Concomitant]
     Active Substance: PSEUDOEPHEDRINE HYDROCHLORIDE
     Route: 048
  14. PROAIR HFA [Concomitant]
     Active Substance: ALBUTEROL SULFATE
  15. LEVOTHYROXINE SODIUM [Concomitant]
     Active Substance: LEVOTHYROXINE SODIUM
     Route: 048
  16. ALBUTEROL [Concomitant]
     Active Substance: ALBUTEROL
  17. PROAIR HFA [Concomitant]
     Active Substance: ALBUTEROL SULFATE
  18. ZYRTEC [Concomitant]
     Active Substance: CETIRIZINE HYDROCHLORIDE

REACTIONS (11)
  - Dermatitis exfoliative [Unknown]
  - Fatigue [Unknown]
  - Toothache [Unknown]
  - Headache [Not Recovered/Not Resolved]
  - Dizziness [Not Recovered/Not Resolved]
  - Skin exfoliation [Not Recovered/Not Resolved]
  - Erythema [Unknown]
  - Insomnia [Unknown]
  - Skin burning sensation [Not Recovered/Not Resolved]
  - Dry eye [Unknown]
  - Rash [Not Recovered/Not Resolved]

NARRATIVE: CASE EVENT DATE: 20200101
